FAERS Safety Report 16871377 (Version 1)
Quarter: 2019Q4

REPORT INFORMATION
  Report Type: Report from Study
  Country: None (occurrence: CA)
  Receive Date: 20191001
  Receipt Date: 20191001
  Transmission Date: 20200122
  Serious: Yes (Other)
  Sender: FDA-Public Use
  Company Number: CA-ABBVIE-19K-028-2943459-00

PATIENT
  Age: 38 Year
  Sex: Female

DRUGS (1)
  1. HUMIRA [Suspect]
     Active Substance: ADALIMUMAB
     Indication: COLITIS ULCERATIVE
     Route: 058
     Dates: start: 20150202

REACTIONS (11)
  - Diarrhoea [Not Recovered/Not Resolved]
  - Blood bicarbonate abnormal [Unknown]
  - Food intolerance [Not Recovered/Not Resolved]
  - Impaired quality of life [Not Recovered/Not Resolved]
  - Mucous stools [Recovered/Resolved]
  - Arthralgia [Not Recovered/Not Resolved]
  - Frequent bowel movements [Recovered/Resolved]
  - Pain [Not Recovered/Not Resolved]
  - Keratoconus [Unknown]
  - Impaired work ability [Not Recovered/Not Resolved]
  - Headache [Not Recovered/Not Resolved]

NARRATIVE: CASE EVENT DATE: 201908
